FAERS Safety Report 8977648 (Version 1)
Quarter: 2012Q4

REPORT INFORMATION
  Report Type: 
  Country: DK (occurrence: DK)
  Receive Date: 20121220
  Receipt Date: 20121220
  Transmission Date: 20130627
  Serious: Yes (Death, Congenital Anomaly)
  Sender: FDA-Public Use
  Company Number: DK-GLAXOSMITHKLINE-B0853525A

PATIENT
  Sex: Male
  Weight: 3.7 kg

DRUGS (1)
  1. FLIXONASE [Suspect]
     Indication: SEASONAL ALLERGY
     Route: 064

REACTIONS (2)
  - Coarctation of the aorta [Fatal]
  - Foetal exposure during pregnancy [Recovered/Resolved]
